FAERS Safety Report 7231800-0 (Version None)
Quarter: 2011Q1

REPORT INFORMATION
  Report Type: 
  Country: None (occurrence: None)
  Receive Date: 20110118
  Receipt Date: 20110111
  Transmission Date: 20110831
  Serious: Yes (Hospitalization)
  Sender: FDA-Public Use
  Company Number: US-US-EMD SERONO, INC.-232732J09USA

PATIENT
  Sex: Male

DRUGS (3)
  1. ALPHAGAN [Concomitant]
     Indication: GLAUCOMA
     Dates: start: 20060101
  2. REBIF [Suspect]
     Indication: MULTIPLE SCLEROSIS
     Route: 058
     Dates: start: 20090409
  3. PREDNISONE EYE DROPS [Concomitant]
     Indication: UVEITIS

REACTIONS (4)
  - BACK PAIN [None]
  - DYSURIA [None]
  - PYREXIA [None]
  - INJECTION SITE PAIN [None]
